FAERS Safety Report 13058416 (Version 1)
Quarter: 2016Q4

REPORT INFORMATION
  Report Type: Spontaneous
  Country: US (occurrence: US)
  Receive Date: 20161209
  Receipt Date: 20161209
  Transmission Date: 20170207
  Serious: Yes (Disabling)
  Sender: FDA-Public Use
  Company Number: None

PATIENT
  Age: 60 Year
  Sex: Female
  Weight: 65.77 kg

DRUGS (4)
  1. CORTEF [Suspect]
     Active Substance: HYDROCORTISONE
     Indication: ADRENAL INSUFFICIENCY
     Route: 048
     Dates: start: 20160721, end: 20161120
  2. NATURE-THROID [Concomitant]
     Active Substance: THYROID, PORCINE
  3. PROGESTERONE. [Concomitant]
     Active Substance: PROGESTERONE
  4. VITAMIN C [Concomitant]
     Active Substance: ASCORBIC ACID

REACTIONS (6)
  - Dyspnoea [None]
  - Anti-transglutaminase antibody increased [None]
  - Diarrhoea [None]
  - Eye inflammation [None]
  - Arrhythmia [None]
  - Pruritus [None]

NARRATIVE: CASE EVENT DATE: 20160721
